FAERS Safety Report 7204249 (Version 5)
Quarter: 2014Q2

REPORT INFORMATION
  Report Type: Spontaneous
  Country: US (occurrence: US)
  Receive Date: 20091208
  Receipt Date: 20140407
  Transmission Date: 20141212
  Serious: Yes (Death, Hospitalization)
  Sender: FDA-Public Use
  Company Number: US-ALEXION-A200901019

PATIENT
  Age: 29 Year
  Sex: Male

DRUGS (1)
  1. SOLIRIS 300MG [Suspect]
     Dosage: UNK
     Route: 042
     Dates: start: 200911, end: 200911

REACTIONS (5)
  - Meningitis cryptococcal [Fatal]
  - Mental status changes [Recovering/Resolving]
  - Post lumbar puncture syndrome [Unknown]
  - Nausea [Unknown]
  - Vomiting [Unknown]
